FAERS Safety Report 8153712-0 (Version None)
Quarter: 2012Q1

REPORT INFORMATION
  Report Type: 
  Country: None (occurrence: None)
  Receive Date: 20120221
  Receipt Date: 20120214
  Transmission Date: 20120608
  Serious: Yes (Hospitalization)
  Sender: FDA-Public Use
  Company Number: FR-PFIZER INC-2012038994

PATIENT
  Age: 61 Year
  Sex: Female

DRUGS (7)
  1. ZOLPIDEM [Suspect]
     Dosage: UNK
     Route: 048
     Dates: start: 20111210, end: 20111212
  2. VFEND [Suspect]
     Dosage: UNK
     Dates: start: 20120102
  3. VFEND [Suspect]
     Dosage: UNK
     Route: 042
     Dates: start: 20111208, end: 20111212
  4. ZOLPIDEM [Suspect]
     Dosage: UNK
     Dates: start: 20111226
  5. CIPROFLOXACIN [Suspect]
     Dosage: UNK
     Route: 048
     Dates: start: 20111209, end: 20111213
  6. DAUNORUBICIN [Concomitant]
     Indication: ACUTE LEUKAEMIA
     Dosage: UNK
     Dates: start: 20111128, end: 20111130
  7. CYTARABINE [Concomitant]
     Indication: ACUTE LEUKAEMIA
     Dosage: UNK
     Dates: start: 20111128, end: 20111204

REACTIONS (5)
  - HALLUCINATION, AUDITORY [None]
  - HALLUCINATION, VISUAL [None]
  - NIGHTMARE [None]
  - CONFUSIONAL STATE [None]
  - TREMOR [None]
